FAERS Safety Report 5826319-5 (Version None)
Quarter: 2008Q3

REPORT INFORMATION
  Report Type: 
  Country: None (occurrence: None)
  Receive Date: 20080729
  Receipt Date: 20080717
  Transmission Date: 20090109
  Serious: Yes (Other)
  Sender: FDA-Public Use
  Company Number: US-PFIZER INC-2008060564

PATIENT

DRUGS (2)
  1. LYRICA [Suspect]
  2. CRESTOR [Suspect]

REACTIONS (2)
  - HEPATIC FAILURE [None]
  - RENAL FAILURE [None]
